FAERS Safety Report 9430163 (Version 1)
Quarter: 2013Q3

REPORT INFORMATION
  Report Type: Spontaneous
  Country: US (occurrence: US)
  Receive Date: 20130730
  Receipt Date: 20130730
  Transmission Date: 20140515
  Serious: No
  Sender: FDA-Public Use
  Company Number: US-PFIZER INC-2013221615

PATIENT
  Sex: Female

DRUGS (5)
  1. LYRICA [Suspect]
     Indication: SPINAL COLUMN STENOSIS
     Dosage: 300 MG, UNK
     Route: 048
  2. LYRICA [Suspect]
     Dosage: 375 MG, UNK
     Route: 048
  3. LYRICA [Suspect]
     Dosage: 100 MG, UNK
     Route: 048
  4. LYRICA [Suspect]
     Dosage: 100 MG, ALTERNATE DAY
     Route: 048
     Dates: end: 201307
  5. LYRICA [Suspect]
     Dosage: 100 MG, 1X/DAY
     Route: 048
     Dates: start: 201307

REACTIONS (2)
  - Off label use [Unknown]
  - Drug withdrawal syndrome [Unknown]
